FAERS Safety Report 13390384 (Version 3)
Quarter: 2017Q3

REPORT INFORMATION
  Report Type: Spontaneous
  Country: US (occurrence: US)
  Receive Date: 20170331
  Receipt Date: 20170705
  Transmission Date: 20171127
  Serious: No
  Sender: FDA-Public Use
  Company Number: US-PFIZER INC-2017132825

PATIENT
  Age: 64 Year
  Sex: Female

DRUGS (1)
  1. XELJANZ XR [Suspect]
     Active Substance: TOFACITINIB CITRATE
     Dosage: 11 MG, UNK

REACTIONS (7)
  - Joint crepitation [Unknown]
  - Nodal osteoarthritis [Unknown]
  - Swelling [Unknown]
  - Joint swelling [Unknown]
  - Osteoarthritis [Unknown]
  - Pain [Unknown]
  - Dry skin [Unknown]
